FAERS Safety Report 24049402 (Version 1)
Quarter: 2024Q3

REPORT INFORMATION
  Report Type: Spontaneous
  Country: GB (occurrence: GB)
  Receive Date: 20240704
  Receipt Date: 20240704
  Transmission Date: 20241016
  Serious: No
  Sender: ALKEM
  Company Number: None

PATIENT
  Age: 58 Year
  Sex: Male
  Weight: 79 kg

DRUGS (26)
  1. IBUPROFEN [Suspect]
     Active Substance: IBUPROFEN
     Indication: Ill-defined disorder
     Dosage: UNK
     Route: 065
     Dates: start: 20240312
  2. BACLOFEN [Concomitant]
     Active Substance: BACLOFEN
     Indication: Ill-defined disorder
     Dosage: UNK, TID (TAKE ONE 3 TIMES/DAY)
     Route: 065
     Dates: start: 20240108, end: 20240205
  3. BECLOMETHASONE DIPROPIONATE [Concomitant]
     Active Substance: BECLOMETHASONE DIPROPIONATE
     Indication: Ill-defined disorder
     Dosage: UNK, BID (TWO PUFFS TWICE DAILY)
     Route: 065
     Dates: start: 20240131, end: 20240228
  4. BETAMETHASONE SODIUM PHOSPHATE [Concomitant]
     Active Substance: BETAMETHASONE SODIUM PHOSPHATE
     Indication: Ill-defined disorder
     Dosage: UNK, TID (2-3 DROPS INTO EACH NOSTRIL THREE TIMES A DAY)
     Route: 065
     Dates: start: 20240130, end: 20240204
  5. BUPRENORPHINE [Concomitant]
     Active Substance: BUPRENORPHINE
     Indication: Ill-defined disorder
     Dosage: UNK (APPLY THIS ONE PATCH AFTER THE 10 MICROGRAM (MCG) PATCH HAS)
     Route: 065
     Dates: start: 20240103, end: 20240131
  6. CALCIUM CARBONATE [Concomitant]
     Active Substance: CALCIUM CARBONATE
     Indication: Ill-defined disorder
     Dosage: UNK, BID (TAKE ONE TWICE DAILY)
     Route: 065
     Dates: start: 20240308
  7. COCODAMOL [Concomitant]
     Active Substance: ACETAMINOPHEN\CODEINE PHOSPHATE
     Indication: Ill-defined disorder
     Dosage: UNK, QID (TAKE 1 OR 2 4 TIMES/DAY)
     Route: 065
     Dates: start: 20240122, end: 20240221
  8. DIAZEPAM [Concomitant]
     Active Substance: DIAZEPAM
     Indication: Ill-defined disorder
     Dosage: UNK, (TAKE ONE UP TO THREE TIMES A DAY FOR ACUTE MUSCLE SPASM)
     Route: 065
     Dates: start: 20240307
  9. DIAZEPAM [Concomitant]
     Active Substance: DIAZEPAM
     Indication: Muscle spasms
  10. FEXOFENADINE [Concomitant]
     Active Substance: FEXOFENADINE HYDROCHLORIDE
     Indication: Ill-defined disorder
     Dosage: UNK, QD (TAKE ONE DAILY)
     Route: 065
     Dates: start: 20240312
  11. IBUPROFEN [Concomitant]
     Active Substance: IBUPROFEN
     Indication: Ill-defined disorder
     Dosage: UNK, TID (TAKE TWO 3 TIMES/DAY WITH FOOD)
     Route: 065
     Dates: start: 20240311
  12. LANSOPRAZOLE [Concomitant]
     Active Substance: LANSOPRAZOLE
     Indication: Ill-defined disorder
     Dosage: UNK, BID (TAKE ONE TWICE A DAY ABOUT 30-45 MINS BEFORE A REGULAR MEAL, ON AN EMPTY STOMACH)
     Route: 065
     Dates: start: 20240214
  13. Macrogol Compound [Concomitant]
     Indication: Ill-defined disorder
     Dosage: 1 DOSAGE FORM, BID (ONE SACHET TWICE A DAY FOR CONSTIPATION)
     Route: 065
     Dates: start: 20231227, end: 20240126
  14. Macrogol Compound [Concomitant]
     Indication: Constipation
  15. METHOCARBAMOL [Concomitant]
     Active Substance: METHOCARBAMOL
     Indication: Ill-defined disorder
     Dosage: UNK, QID (TAKE TWO 4 TIMES/DAY)
     Route: 065
     Dates: start: 20240308
  16. MOMETASONE [Concomitant]
     Active Substance: MOMETASONE
     Indication: Ill-defined disorder
     Dosage: UNK, OD (TWO SPRAYS TO EACH NOSTRIL ONCE A DAY, WHEN SYM)
     Route: 065
     Dates: start: 20240130, end: 20240305
  17. MORPHINE SULFATE [Concomitant]
     Active Substance: MORPHINE SULFATE
     Indication: Ill-defined disorder
     Dosage: UNK, (5-10MILLIGRAM (2.5 - 5MILLILITER) EVERY 2 HOURS AS REQUIRED FOR PAIN)
     Route: 065
     Dates: start: 20240109, end: 20240206
  18. MORPHINE SULFATE [Concomitant]
     Active Substance: MORPHINE SULFATE
     Indication: Pain
  19. NAPROXEN [Concomitant]
     Active Substance: NAPROXEN
     Indication: Ill-defined disorder
     Dosage: UNK, BID (TAKE ONE TWICE DAILY)
     Route: 065
     Dates: start: 20240308, end: 20240311
  20. NEFOPAM [Concomitant]
     Active Substance: NEFOPAM
     Indication: Ill-defined disorder
     Dosage: UNK, TID (TAKE TWO 3 TIMES/DAY)
     Route: 065
     Dates: start: 20240308
  21. OMEPRAZOLE [Concomitant]
     Active Substance: OMEPRAZOLE
     Indication: Ill-defined disorder
     Dosage: UNK, QD (TAKE ONE DAILY PRN)
     Route: 065
     Dates: start: 20230531, end: 20240308
  22. BUPRENORPHINE [Concomitant]
     Active Substance: BUPRENORPHINE
     Indication: Ill-defined disorder
     Dosage: UNK (APPLY TODAY)
     Route: 065
     Dates: start: 20240102, end: 20240130
  23. SENNA [Concomitant]
     Active Substance: SENNA LEAF\SENNOSIDES\SENNOSIDES A AND B
     Indication: Ill-defined disorder
     Dosage: UNK, BID (TAKE ONE TWICE A DAY FOR CONSTIPATION WHILST ON OPIATES)
     Route: 065
     Dates: start: 20240214
  24. SENNA [Concomitant]
     Active Substance: SENNA LEAF\SENNOSIDES\SENNOSIDES A AND B
     Indication: Constipation
  25. THIAMINE [Concomitant]
     Active Substance: THIAMINE
     Indication: Ill-defined disorder
     Dosage: UNK, BID (TAKE TWICE DAILY DUE TO HIGH ALCOHOL CONSUMPTION)
     Route: 065
     Dates: start: 20231227
  26. ACETAMINOPHEN\CODEINE PHOSPHATE [Concomitant]
     Active Substance: ACETAMINOPHEN\CODEINE PHOSPHATE
     Indication: Ill-defined disorder
     Dosage: UNK (ONE TO TWO TABLETS TO BE TAKEN EVERY FOUR TO SIX HOURS. MAX 8 TABLETS IN 24 HOURS)
     Route: 065
     Dates: start: 20240311

REACTIONS (1)
  - Dyspnoea [Recovered/Resolved]

NARRATIVE: CASE EVENT DATE: 20240312
